FAERS Safety Report 10379985 (Version 1)
Quarter: 2014Q3

REPORT INFORMATION
  Report Type: Spontaneous
  Country: US (occurrence: US)
  Receive Date: 20140813
  Receipt Date: 20140813
  Transmission Date: 20150326
  Serious: No
  Sender: FDA-Public Use
  Company Number: US-ASTRAZENECA-2014SE56219

PATIENT
  Age: 58 Year
  Sex: Female
  Weight: 43.1 kg

DRUGS (9)
  1. PROAIR HFA [Concomitant]
     Active Substance: ALBUTEROL SULFATE
     Indication: DYSPNOEA
     Dosage: 2 PUFFS PRN
     Route: 055
  2. PREDNISONE. [Concomitant]
     Active Substance: PREDNISONE
     Indication: ILL-DEFINED DISORDER
     Route: 048
  3. UNSPECIFIED ANTIHISTAMINE [Suspect]
     Active Substance: ANTIHISTAMINES NOS
     Route: 065
  4. ACCOLATE [Suspect]
     Active Substance: ZAFIRLUKAST
     Indication: IMMUNE SYSTEM DISORDER
     Route: 048
  5. ACCOLATE [Suspect]
     Active Substance: ZAFIRLUKAST
     Indication: IMMUNE SYSTEM DISORDER
     Route: 048
  6. ACCOLATE [Suspect]
     Active Substance: ZAFIRLUKAST
     Indication: IMMUNE SYSTEM DISORDER
     Route: 048
     Dates: start: 20140531
  7. METOCLOPRAMIDE. [Concomitant]
     Active Substance: METOCLOPRAMIDE
     Indication: NAUSEA
     Route: 048
  8. ACCOLATE [Suspect]
     Active Substance: ZAFIRLUKAST
     Indication: IMMUNE SYSTEM DISORDER
     Route: 048
     Dates: start: 2000, end: 201405
  9. EPIPEN [Concomitant]
     Active Substance: EPINEPHRINE
     Indication: ILL-DEFINED DISORDER
     Route: 050

REACTIONS (7)
  - Drug ineffective [Recovering/Resolving]
  - Pruritus [Unknown]
  - Intentional product misuse [Unknown]
  - Cough [Unknown]
  - Rash [Recovering/Resolving]
  - Eczema [Recovering/Resolving]
  - Increased upper airway secretion [Recovering/Resolving]

NARRATIVE: CASE EVENT DATE: 2000
